FAERS Safety Report 22604138 (Version 1)
Quarter: 2023Q2

REPORT INFORMATION
  Report Type: Other
  Country: GB (occurrence: GB)
  Receive Date: 20230615
  Receipt Date: 20230615
  Transmission Date: 20230721
  Serious: Yes (Other)
  Sender: FDA-Public Use
  Company Number: None

PATIENT

DRUGS (18)
  1. GABAPENTIN [Suspect]
     Active Substance: GABAPENTIN
     Indication: Pain in extremity
     Dosage: UNK
     Route: 065
     Dates: start: 20230602
  2. AMLODIPINE [Concomitant]
     Active Substance: AMLODIPINE BESYLATE
     Indication: Ill-defined disorder
     Dosage: QD, (TAKE ONE DAILY)
     Route: 065
     Dates: start: 20230214
  3. BECLOMETHASONE DIPROPIONATE [Concomitant]
     Active Substance: BECLOMETHASONE DIPROPIONATE
     Indication: Ill-defined disorder
     Dosage: 2 DOSAGE FORM, BID (TWO PUFFS TWICE DAILY)
     Route: 065
     Dates: start: 20230601
  4. BETAMETHASONE VALERATE [Concomitant]
     Active Substance: BETAMETHASONE VALERATE
     Indication: Ill-defined disorder
     Dosage: UNK, BID (APPLY TWICE DAILY FOR 7 DAYS TOTAL)
     Route: 065
     Dates: start: 20230519, end: 20230526
  5. BETNOVATE [Concomitant]
     Active Substance: BETAMETHASONE
     Indication: Pruritus
     Dosage: UNK, BID (APPLY TO BE TAKEN TWICE DAILY ITCHY AREAS)
     Route: 065
     Dates: start: 20230428, end: 20230526
  6. DOXAZOSIN [Concomitant]
     Active Substance: DOXAZOSIN MESYLATE
     Indication: Ill-defined disorder
     Dosage: QD, (TAKE ONE DAILY)
     Route: 065
     Dates: start: 20230421, end: 20230428
  7. PARAFFIN\WAX, EMULSIFYING [Concomitant]
     Active Substance: PARAFFIN\WAX, EMULSIFYING
     Indication: Dry skin
     Dosage: UNK, BID, (APPLY TO BE TAKEN TWICE DAILY DRY SKIN)
     Route: 065
     Dates: start: 20230428, end: 20230526
  8. FERROUS FUMARATE [Concomitant]
     Active Substance: FERROUS FUMARATE
     Indication: Ill-defined disorder
     Dosage: BID, (1X5ML SPOON TWICE DAILY)
     Route: 065
     Dates: start: 20220810
  9. FLUTICASONE FUROATE [Concomitant]
     Active Substance: FLUTICASONE FUROATE
     Indication: Ill-defined disorder
     Dosage: UNK, QD (USE ONCE DAILY)
     Route: 065
     Dates: start: 20230315, end: 20230412
  10. FUSIDIC ACID [Concomitant]
     Active Substance: FUSIDIC ACID
     Indication: Ill-defined disorder
     Dosage: UNK, BID (APPLY TWICE DAILY)
     Route: 065
     Dates: start: 20230316, end: 20230413
  11. GABAPENTIN [Concomitant]
     Active Substance: GABAPENTIN
     Indication: Ill-defined disorder
     Dosage: UNK, TID (TAKE ONE 3 TIMES/DAY)
     Route: 065
     Dates: start: 20230421
  12. LANSOPRAZOLE [Concomitant]
     Active Substance: LANSOPRAZOLE
     Indication: Ill-defined disorder
     Dosage: QD (TAKE ONE ONCE DAILY)
     Route: 065
     Dates: start: 20230214, end: 20230519
  13. LOSARTAN [Concomitant]
     Active Substance: LOSARTAN
     Indication: Ill-defined disorder
     Dosage: QD, (TAKE ONE DAILY)
     Route: 065
     Dates: start: 20230406, end: 20230421
  14. METFORMIN [Concomitant]
     Active Substance: METFORMIN HYDROCHLORIDE
     Indication: Ill-defined disorder
     Dosage: 2 DOSAGE FORM, BID (TAKE TWO TABLETS TWICE A AY WITH MEALS)
     Route: 065
     Dates: start: 20221018
  15. MICONAZOLE [Concomitant]
     Active Substance: MICONAZOLE
     Indication: Ill-defined disorder
     Dosage: UNK, QID (USE 4 TIMES/DAY)
     Route: 065
     Dates: start: 20230519, end: 20230524
  16. OMEPRAZOLE [Concomitant]
     Active Substance: OMEPRAZOLE
     Indication: Ill-defined disorder
     Dosage: QD, (TAKE ONE DAILY)
     Route: 065
     Dates: start: 20230519
  17. OXYBUTYNIN [Concomitant]
     Active Substance: OXYBUTYNIN
     Indication: Ill-defined disorder
     Dosage: BID, (1 TO BE TAKEN TWICE DAILY)
     Route: 065
     Dates: start: 20230428, end: 20230504
  18. RAMIPRIL [Concomitant]
     Active Substance: RAMIPRIL
     Indication: Ill-defined disorder
     Dosage: QD, (TAKE ONE DAILY)
     Route: 065
     Dates: start: 20230421, end: 20230421

REACTIONS (3)
  - Adverse drug reaction [Not Recovered/Not Resolved]
  - Mouth ulceration [Not Recovered/Not Resolved]
  - Gingival discomfort [Not Recovered/Not Resolved]

NARRATIVE: CASE EVENT DATE: 20230602
